FAERS Safety Report 21372962 (Version 1)
Quarter: 2022Q3

REPORT INFORMATION
  Report Type: Report from Study
  Country: US (occurrence: US)
  Receive Date: 20220924
  Receipt Date: 20220924
  Transmission Date: 20221027
  Serious: Yes (Other)
  Sender: FDA-Public Use
  Company Number: US-ABBVIE-4130164

PATIENT
  Age: 82 Year
  Sex: Female

DRUGS (1)
  1. CREON [Suspect]
     Active Substance: PANCRELIPASE AMYLASE\PANCRELIPASE LIPASE\PANCRELIPASE PROTEASE
     Indication: Product used for unknown indication
     Dosage: DOSAGE: 36000 U 36,000 UNIT CAPSULES: TAKE 2 CAPSULES BY MOUTH WITH MEALS AND TAKE 1 CAPSULE BY M...
     Route: 048

REACTIONS (2)
  - Cardiac failure [Unknown]
  - Cardiac failure [Unknown]

NARRATIVE: CASE EVENT DATE: 20220909
